FAERS Safety Report 9338336 (Version 1)
Quarter: 2013Q2

REPORT INFORMATION
  Report Type: Spontaneous
  Country: US (occurrence: US)
  Receive Date: 20130610
  Receipt Date: 20130610
  Transmission Date: 20140414
  Serious: No
  Sender: FDA-Public Use
  Company Number: US-PFIZER INC-2013173193

PATIENT
  Age: 81 Year
  Sex: Female

DRUGS (2)
  1. SKELAXIN [Suspect]
     Dosage: 800 MG, UNK
     Dates: start: 2011
  2. COUMADIN [Concomitant]
     Dosage: UNK

REACTIONS (1)
  - Drug effect incomplete [Unknown]
